FAERS Safety Report 5407309-3 (Version None)
Quarter: 2007Q3

REPORT INFORMATION
  Report Type: 
  Country: None (occurrence: None)
  Receive Date: 20070807
  Receipt Date: 20070802
  Transmission Date: 20080115
  Serious: Yes (Other)
  Sender: FDA-Public Use
  Company Number: US-ASTRAZENECA-2007UW09609

PATIENT
  Age: 26116 Day
  Sex: Female
  Weight: 84.1 kg

DRUGS (1)
  1. SEROQUEL [Suspect]
     Indication: INSOMNIA
     Route: 048
     Dates: start: 20060417, end: 20060517

REACTIONS (4)
  - NEUROPATHY [None]
  - TREMOR [None]
  - TYPE 2 DIABETES MELLITUS [None]
  - VISION BLURRED [None]
